FAERS Safety Report 21233087 (Version 1)
Quarter: 2022Q3

REPORT INFORMATION
  Report Type: Spontaneous
  Country: GB (occurrence: GB)
  Receive Date: 20220819
  Receipt Date: 20220819
  Transmission Date: 20221026
  Serious: Yes (Hospitalization)
  Sender: FDA-Public Use
  Company Number: GB-VERTEX PHARMACEUTICALS-2022-012086

PATIENT
  Sex: Male

DRUGS (1)
  1. ELEXACAFTOR\IVACAFTOR\TEZACAFTOR [Suspect]
     Active Substance: ELEXACAFTOR\IVACAFTOR\TEZACAFTOR
     Indication: Cystic fibrosis
     Dosage: ONE TABLET (75 MG IVA/50 MG TEZA/100 MG ELEXA) IN THE EVENING
     Route: 048

REACTIONS (2)
  - Sepsis [Not Recovered/Not Resolved]
  - Feeling abnormal [Not Recovered/Not Resolved]
